FAERS Safety Report 10027698 (Version 1)
Quarter: 2014Q1

REPORT INFORMATION
  Report Type: Spontaneous
  Country: US (occurrence: None)
  Receive Date: 20140220
  Receipt Date: 20140220
  Transmission Date: 20141002
  Serious: Yes (Other)
  Sender: FDA-Public Use
  Company Number: 2010S1000357

PATIENT
  Sex: Male

DRUGS (1)
  1. FLEET PHOSPHO-SODA [Suspect]
     Indication: CONSTIPATION
     Route: 048
     Dates: start: 200608, end: 200609

REACTIONS (2)
  - Renal impairment [None]
  - Haemodialysis [None]
